FAERS Safety Report 5380290-1 (Version None)
Quarter: 2007Q3

REPORT INFORMATION
  Report Type: 
  Country: None (occurrence: None)
  Receive Date: 20070706
  Receipt Date: 20070626
  Transmission Date: 20080115
  Serious: Yes (Death)
  Sender: FDA-Public Use
  Company Number: ES-ROCHE-504488

PATIENT
  Age: 52 Year
  Sex: Female

DRUGS (1)
  1. XELODA [Suspect]
     Dosage: FORM REPORTED AS FILM COATED TABLETS.
     Route: 048
     Dates: start: 20060801, end: 20060801

REACTIONS (4)
  - ANOREXIA [None]
  - ASTHENIA [None]
  - HEADACHE [None]
  - VOMITING [None]
